FAERS Safety Report 9645287 (Version 1)
Quarter: 2013Q4

REPORT INFORMATION
  Report Type: Report from Study
  Country: GB (occurrence: GB)
  Receive Date: 20131025
  Receipt Date: 20131025
  Transmission Date: 20140711
  Serious: Yes (Hospitalization)
  Sender: FDA-Public Use
  Company Number: PHHY2013GB117231

PATIENT
  Age: 62 Year
  Sex: Male

DRUGS (17)
  1. EVEROLIMUS [Suspect]
     Indication: RENAL CELL CARCINOMA
     Dosage: 5 MG, QD
     Route: 048
     Dates: start: 20121008, end: 20121023
  2. EVEROLIMUS [Suspect]
     Dosage: 5 MG, QD
     Route: 048
     Dates: start: 20121031, end: 20121117
  3. EVEROLIMUS [Suspect]
     Dosage: 5 MG, QD
     Route: 048
     Dates: start: 20121221, end: 20130101
  4. LENVATINIB [Suspect]
     Indication: RENAL CELL CARCINOMA
     Dosage: 19 MG, QD
     Route: 048
     Dates: start: 20121008, end: 20121023
  5. LENVATINIB [Suspect]
     Dosage: 18 MG, QD
     Route: 048
     Dates: start: 20121031, end: 20121208
  6. LENVATINIB [Suspect]
     Dosage: 14 MG, QD
     Route: 048
     Dates: start: 20121221, end: 20130101
  7. SENNA [Concomitant]
  8. DICLOFENAC [Concomitant]
     Dosage: UNK UKN, UNK
  9. OXYCONTIN [Concomitant]
  10. MIRTAZAPINE [Concomitant]
  11. FENOFIBRATE [Concomitant]
  12. CYCLIZINE [Concomitant]
     Dosage: UNK UKN, UNK
  13. FLUCONAZOLE [Concomitant]
     Dosage: UNK UKN, UNK
  14. RAMIPRIL [Concomitant]
     Dosage: 2.5 MG, QD
     Route: 048
  15. METFORMIN [Concomitant]
     Dosage: 500 MG, QD
     Route: 048
  16. AMITRIPTYLENE [Concomitant]
     Dosage: 10 MG, QD
  17. GABAPENTIN [Concomitant]
     Dosage: 300 MG, TID
     Route: 048

REACTIONS (5)
  - Chest discomfort [Recovered/Resolved]
  - Sepsis [Unknown]
  - Constipation [Unknown]
  - Confusional state [Recovered/Resolved]
  - Renal failure acute [Recovered/Resolved]
